FAERS Safety Report 6836020-7 (Version None)
Quarter: 2010Q3

REPORT INFORMATION
  Report Type: 
  Country: None (occurrence: None)
  Receive Date: 20100713
  Receipt Date: 20100707
  Transmission Date: 20110219
  Serious: Yes (Death)
  Sender: FDA-Public Use
  Company Number: A0869631A

PATIENT
  Age: 80 Year
  Sex: Male

DRUGS (1)
  1. AVANDIA [Suspect]
     Dates: end: 20071210

REACTIONS (2)
  - DEATH [None]
  - MYOCARDIAL INFARCTION [None]
